FAERS Safety Report 24774887 (Version 5)
Quarter: 2025Q2

REPORT INFORMATION
  Report Type: Report from Study
  Country: GB (occurrence: GB)
  Receive Date: 20241226
  Receipt Date: 20250610
  Transmission Date: 20250717
  Serious: Yes (Other)
  Sender: TAKEDA
  Company Number: GB-TAKEDA-2024TUS125976

PATIENT
  Age: 61 Year
  Sex: Male

DRUGS (2)
  1. VEDOLIZUMAB [Suspect]
     Active Substance: VEDOLIZUMAB
     Indication: Crohn^s disease
     Dosage: 108 MILLIGRAM, Q2WEEKS
  2. VEDOLIZUMAB [Suspect]
     Active Substance: VEDOLIZUMAB

REACTIONS (13)
  - Lower respiratory tract infection [Unknown]
  - Weight decreased [Unknown]
  - Osteoarthritis [Unknown]
  - Accident at work [Unknown]
  - Somnolence [Unknown]
  - Body temperature increased [Unknown]
  - Memory impairment [Unknown]
  - Malaise [Unknown]
  - Ear pain [Unknown]
  - Hyperhidrosis [Unknown]
  - Arthralgia [Unknown]
  - Injection site reaction [Unknown]
  - Back pain [Unknown]

NARRATIVE: CASE EVENT DATE: 20250505
